FAERS Safety Report 11614009 (Version 10)
Quarter: 2016Q3

REPORT INFORMATION
  Report Type: Spontaneous
  Country: US (occurrence: US)
  Receive Date: 20151008
  Receipt Date: 20160826
  Transmission Date: 20161109
  Serious: No
  Sender: FDA-Public Use
  Company Number: US-ACTELION PHARMACEUTICALS US, INC.-A-US2015-111450

PATIENT
  Age: 66 Year
  Sex: Female

DRUGS (7)
  1. TRACLEER [Suspect]
     Active Substance: BOSENTAN
     Dosage: UNK
     Route: 048
  2. REMODULIN [Suspect]
     Active Substance: TREPROSTINIL
     Indication: PRODUCT USED FOR UNKNOWN INDICATION
     Route: 058
  3. ASPIRIN. [Concomitant]
     Active Substance: ASPIRIN
  4. SILDENAFIL. [Concomitant]
     Active Substance: SILDENAFIL
  5. TRACLEER [Suspect]
     Active Substance: BOSENTAN
     Indication: PULMONARY ARTERIAL HYPERTENSION
     Dosage: 125 MG, BID
     Route: 048
     Dates: start: 20060922
  6. TRACLEER [Suspect]
     Active Substance: BOSENTAN
     Dosage: UNK
     Route: 048
  7. TYVASO [Concomitant]
     Active Substance: TREPROSTINIL

REACTIONS (32)
  - Infusion site rash [Unknown]
  - Peripheral swelling [Unknown]
  - Pruritus [Unknown]
  - Rash [Unknown]
  - Infusion site warmth [Unknown]
  - Burning sensation [Unknown]
  - Device intolerance [Unknown]
  - Dyspnoea [Unknown]
  - Infusion site irritation [Unknown]
  - Dysstasia [Unknown]
  - Pain in extremity [Recovering/Resolving]
  - Insomnia [Unknown]
  - Weight decreased [Unknown]
  - Condition aggravated [Unknown]
  - Dermatitis contact [Unknown]
  - Bedridden [Unknown]
  - Dyspnoea exertional [Unknown]
  - Infusion site pain [Unknown]
  - Infusion site pruritus [Unknown]
  - Infusion site urticaria [Unknown]
  - Hot flush [Unknown]
  - Malaise [Unknown]
  - Chest discomfort [Unknown]
  - Fatigue [Unknown]
  - Local swelling [Unknown]
  - Rash papular [Unknown]
  - Infusion site swelling [Unknown]
  - Infusion site extravasation [Unknown]
  - Secretion discharge [Unknown]
  - Infusion site erythema [Unknown]
  - Infusion site discharge [Unknown]
  - Hypoaesthesia [Not Recovered/Not Resolved]

NARRATIVE: CASE EVENT DATE: 20150929
